FAERS Safety Report 26092840 (Version 2)
Quarter: 2025Q4

REPORT INFORMATION
  Report Type: Report from Study
  Country: US (occurrence: US)
  Receive Date: 20251126
  Receipt Date: 20251205
  Transmission Date: 20260117
  Serious: Yes (Other)
  Sender: ROCHE
  Company Number: US-ROCHE-3541785

PATIENT
  Age: 78 Year
  Sex: Female
  Weight: 80.74 kg

DRUGS (4)
  1. TECENTRIQ [Suspect]
     Active Substance: ATEZOLIZUMAB
     Indication: Breast cancer female
     Dosage: DATE OF SERVICE: 18/DEC/2024, 04-JUN-2025 AND 18-JUN-2025,  30-JUL-2025, 10-09-2025
     Route: 042
     Dates: start: 20210512
  2. TECENTRIQ [Suspect]
     Active Substance: ATEZOLIZUMAB
     Dosage: DATE OF SERVICE: 18/DEC/2024)
     Route: 065
     Dates: start: 20250102
  3. TECENTRIQ [Suspect]
     Active Substance: ATEZOLIZUMAB
     Dosage: DATE OF SERVICE: 12/NOV/2025
     Route: 065
     Dates: start: 20251112
  4. TECENTRIQ [Suspect]
     Active Substance: ATEZOLIZUMAB
     Dosage: DATE OF SERVICE: 26/NOV/2025
     Route: 065
     Dates: start: 20251126

REACTIONS (12)
  - Off label use [Unknown]
  - Constipation [Unknown]
  - Insomnia [Unknown]
  - Depression [Unknown]
  - Cough [Unknown]
  - Swelling face [Unknown]
  - Headache [Unknown]
  - Haematocrit decreased [Unknown]
  - Haemoglobin decreased [Unknown]
  - Essential tremor [Unknown]
  - Arthralgia [Unknown]
  - Deep vein thrombosis [Unknown]
